FAERS Safety Report 8172122-3 (Version None)
Quarter: 2012Q1

REPORT INFORMATION
  Report Type: 
  Country: None (occurrence: None)
  Receive Date: 20120228
  Receipt Date: 20120222
  Transmission Date: 20120608
  Serious: Yes (Hospitalization, Other)
  Sender: FDA-Public Use
  Company Number: US-ABBOTT-12P-163-0907696-00

PATIENT
  Age: 52 Year
  Sex: Male

DRUGS (8)
  1. CARVEDILOL [Concomitant]
     Indication: PRODUCT USED FOR UNKNOWN INDICATION
  2. ATAZANAVIR [Suspect]
     Indication: HIV INFECTION
     Route: 065
     Dates: start: 20100101
  3. METFORMIN HCL [Concomitant]
     Indication: PRODUCT USED FOR UNKNOWN INDICATION
  4. ABACAVIR SULFATE/LAMIVUDINE [Suspect]
     Indication: HIV INFECTION
     Route: 048
     Dates: start: 20100101
  5. NORVIR [Suspect]
     Indication: HIV INFECTION
     Route: 065
     Dates: start: 20100101
  6. LISINOPRIL [Concomitant]
     Indication: PRODUCT USED FOR UNKNOWN INDICATION
  7. ASPIRIN [Concomitant]
     Indication: PRODUCT USED FOR UNKNOWN INDICATION
  8. TENOFOVIR [Suspect]
     Indication: HIV INFECTION
     Route: 065
     Dates: start: 20100101

REACTIONS (5)
  - PANCREATITIS [None]
  - VOMITING [None]
  - LIPASE ABNORMAL [None]
  - ABDOMINAL PAIN [None]
  - NAUSEA [None]
